FAERS Safety Report 6794007-7 (Version None)
Quarter: 2010Q2

REPORT INFORMATION
  Report Type: 
  Country: None (occurrence: None)
  Receive Date: 20100624
  Receipt Date: 20090526
  Transmission Date: 20101027
  Serious: Yes (Life-Threatening, Other)
  Sender: FDA-Public Use
  Company Number: JP-PFIZER INC-2009212317

PATIENT
  Age: 8 Year
  Sex: Female
  Weight: 16.9 kg

DRUGS (6)
  1. UNASYN [Suspect]
     Indication: APPENDICITIS
     Dosage: 0.75 G, 3X/DAY
     Route: 042
     Dates: start: 20090422, end: 20090422
  2. UNASYN [Suspect]
     Indication: PERITONITIS
  3. CEFTAZIDIME [Suspect]
     Indication: APPENDICITIS
     Dosage: 0.8 G, 3X/DAY
     Route: 042
     Dates: start: 20090422, end: 20090422
  4. CEFTAZIDIME [Suspect]
     Indication: PERITONITIS
  5. VEEN-F [Concomitant]
     Dosage: UNK
     Dates: start: 20090422, end: 20090422
  6. SOLITA-T3 INJECTION [Concomitant]
     Dosage: UNK
     Dates: start: 20090422

REACTIONS (4)
  - ANAPHYLACTIC REACTION [None]
  - DYSPNOEA [None]
  - URTICARIA [None]
  - WHEEZING [None]
